FAERS Safety Report 11786523 (Version 1)
Quarter: 2015Q4

REPORT INFORMATION
  Report Type: Spontaneous
  Country: US (occurrence: US)
  Receive Date: 20151130
  Receipt Date: 20151130
  Transmission Date: 20160305
  Serious: No
  Sender: FDA-Public Use
  Company Number: US-BIOCOMPATIBLES UK LTD-BTG00454

PATIENT
  Age: 25 Year
  Sex: Female
  Weight: 55 kg

DRUGS (1)
  1. CROFAB [Suspect]
     Active Substance: CROTALIDAE POLYVALENT IMMUNE FAB (OVINE)
     Indication: SNAKE BITE
     Dosage: 24 VIALS
     Dates: start: 20150405

REACTIONS (14)
  - Stress [Recovering/Resolving]
  - Skin tightness [Recovered/Resolved]
  - Hypoaesthesia [Recovered/Resolved]
  - White blood cell count increased [Recovered/Resolved]
  - Pain [Recovering/Resolving]
  - Contusion [Recovering/Resolving]
  - Swelling [Recovering/Resolving]
  - Erythema [Recovering/Resolving]
  - Nausea [Recovered/Resolved]
  - C-reactive protein increased [Recovered/Resolved]
  - Fibrin D dimer increased [Unknown]
  - Inflammation [Recovered/Resolved]
  - Paraesthesia [Recovered/Resolved]
  - Cellulitis [Recovering/Resolving]

NARRATIVE: CASE EVENT DATE: 20150406
